FAERS Safety Report 18691890 (Version 1)
Quarter: 2021Q1

REPORT INFORMATION
  Report Type: Spontaneous
  Country: US (occurrence: US)
  Receive Date: 20210102
  Receipt Date: 20210102
  Transmission Date: 20210419
  Serious: No
  Sender: FDA-Public Use
  Company Number: US-AUROBINDO-AUR-APL-2020-056720

PATIENT
  Age: 83 Year
  Sex: Male
  Weight: 83.91 kg

DRUGS (1)
  1. SILODOSIN 8 MG CAPSULES [Suspect]
     Active Substance: SILODOSIN
     Indication: BENIGN PROSTATIC HYPERPLASIA
     Dosage: UNK, ONCE A DAY
     Route: 065
     Dates: start: 20201021, end: 20201028

REACTIONS (3)
  - Gait disturbance [Recovered/Resolved]
  - Product substitution issue [Unknown]
  - Dizziness [Recovered/Resolved]

NARRATIVE: CASE EVENT DATE: 20201022
